FAERS Safety Report 4343494-2 (Version None)
Quarter: 2004Q2

REPORT INFORMATION
  Report Type: 
  Country: None (occurrence: None)
  Receive Date: 20040419
  Receipt Date: 20040304
  Transmission Date: 20050107
  Serious: Yes (Other)
  Sender: FDA-Public Use
  Company Number: A-US2003-03703

PATIENT
  Age: 67 Year
  Sex: Female

DRUGS (14)
  1. TRACLEER [Suspect]
     Indication: PULMONARY HYPERTENSION
     Dosage: 62.5 MG, BID, ORAL; 125 MG, BID, ORAL
     Route: 048
     Dates: start: 20030501, end: 20030601
  2. TRACLEER [Suspect]
     Indication: PULMONARY HYPERTENSION
     Dosage: 62.5 MG, BID, ORAL; 125 MG, BID, ORAL
     Route: 048
     Dates: start: 20030601, end: 20031104
  3. ZETIA [Suspect]
     Dosage: ORAL
     Route: 048
     Dates: start: 20031001, end: 20031231
  4. PLAVIX [Concomitant]
  5. ULTRACET [Concomitant]
  6. PREDNISONE [Concomitant]
  7. LASIX [Concomitant]
  8. ATIVAN [Concomitant]
  9. LOVASTATIN [Concomitant]
  10. METOPROLOL [Concomitant]
  11. REGLAN [Concomitant]
  12. IRON [Concomitant]
  13. LISINOPRIL [Concomitant]
  14. CYTOXAN [Concomitant]

REACTIONS (4)
  - ALANINE AMINOTRANSFERASE INCREASED [None]
  - ASPARTATE AMINOTRANSFERASE INCREASED [None]
  - BLOOD ALKALINE PHOSPHATASE INCREASED [None]
  - LIVER FUNCTION TEST ABNORMAL [None]
